FAERS Safety Report 10167439 (Version 1)
Quarter: 2014Q2

REPORT INFORMATION
  Report Type: Report from Study
  Country: US (occurrence: US)
  Receive Date: 20140512
  Receipt Date: 20140512
  Transmission Date: 20141212
  Serious: Yes (Hospitalization)
  Sender: FDA-Public Use
  Company Number: US-ABBVIE-14P-163-1233407-00

PATIENT
  Age: 80 Year
  Sex: Female
  Weight: 57.66 kg

DRUGS (7)
  1. HUMIRA [Suspect]
     Indication: RHEUMATOID ARTHRITIS
     Dates: end: 20140211
  2. HUMIRA [Suspect]
     Dates: start: 20140429
  3. DIGOXICOR [Concomitant]
     Indication: ARRHYTHMIA
  4. SOTOLOL [Concomitant]
     Indication: ARRHYTHMIA
  5. PREDNISONE [Concomitant]
     Indication: RHEUMATOID ARTHRITIS
  6. LEVOTHYROXINE [Concomitant]
     Indication: HYPOTHYROIDISM
  7. TOPAMAX [Concomitant]
     Indication: SPASMODIC DYSPHONIA

REACTIONS (4)
  - Fall [Recovered/Resolved]
  - Hip fracture [Recovered/Resolved]
  - Balance disorder [Not Recovered/Not Resolved]
  - Balance disorder [Recovered/Resolved]
